FAERS Safety Report 7887750-X (Version None)
Quarter: 2011Q4

REPORT INFORMATION
  Report Type: 
  Country: None (occurrence: None)
  Receive Date: 20111101
  Receipt Date: 20111019
  Transmission Date: 20120403
  Serious: Yes (Hospitalization)
  Sender: FDA-Public Use
  Company Number: US-CYPR-2011-000051

PATIENT
  Sex: Male
  Weight: 136.0791 kg

DRUGS (27)
  1. ASPIRIN [Suspect]
     Indication: CORONARY ARTERY DISEASE
     Dosage: 81 MG QD ORAL, 325 MG QD ORAL
     Route: 048
     Dates: start: 20100305, end: 20110817
  2. LASIX [Concomitant]
  3. ALENDRONATE SODIUM [Concomitant]
  4. ABILIFY [Concomitant]
  5. AZULFIDINE [Concomitant]
  6. XANAX [Concomitant]
  7. PLAQUENIL [Concomitant]
  8. COREG [Concomitant]
  9. NOVOLIN 70/30 [Concomitant]
  10. CALCIUM CARBONATE [Concomitant]
  11. LORTAB [Concomitant]
  12. CLOPIDOGREL [Suspect]
     Indication: ANTIPLATELET THERAPY
     Dosage: 75 MG QD ORAL
     Route: 048
     Dates: start: 20110511, end: 20110818
  13. ROSUVASTATIN [Concomitant]
  14. NITROGLYCERIN [Concomitant]
  15. ENABLEX [Concomitant]
  16. LORTAB [Concomitant]
  17. EFFEXOR [Concomitant]
  18. ZANTAC [Concomitant]
  19. LEVOTHYROXINE SODIUM [Concomitant]
  20. NORVASC [Concomitant]
  21. VITAMIN D [Concomitant]
  22. FOLIC ACID [Concomitant]
  23. MULTI-VITAMIN [Concomitant]
  24. XIENCE [Concomitant]
  25. CYPHER STENT [Concomitant]
  26. ORENCIA [Concomitant]
  27. WELLBUTRIN [Concomitant]

REACTIONS (1)
  - CORONARY ARTERY DISEASE [None]
